FAERS Safety Report 26170830 (Version 1)
Quarter: 2025Q4

REPORT INFORMATION
  Report Type: Spontaneous
  Country: US (occurrence: US)
  Receive Date: 20251217
  Receipt Date: 20251217
  Transmission Date: 20260118
  Serious: No
  Sender: JOHNSON AND JOHNSON
  Company Number: US-JNJFOC-20251204343

PATIENT
  Age: 64 Year
  Sex: Male

DRUGS (3)
  1. ERLEADA [Suspect]
     Active Substance: APALUTAMIDE
     Indication: Product used for unknown indication
     Route: 048
  2. ORGOVYX [Suspect]
     Active Substance: RELUGOLIX
     Indication: Neoplasm malignant
     Route: 048
  3. ORGOVYX [Suspect]
     Active Substance: RELUGOLIX
     Dates: start: 20250724

REACTIONS (7)
  - Central obesity [Unknown]
  - Hot flush [Unknown]
  - Asthenia [Unknown]
  - Myalgia [Unknown]
  - Dizziness postural [Unknown]
  - Brain fog [Unknown]
  - Lymphadenopathy [Not Recovered/Not Resolved]
